FAERS Safety Report 15211080 (Version 1)
Quarter: 2018Q3

REPORT INFORMATION
  Report Type: Spontaneous
  Country: US (occurrence: US)
  Receive Date: 20180630
  Receipt Date: 20180630
  Transmission Date: 20181010
  Serious: Yes (Life-Threatening, Disabling, Other)
  Sender: FDA-Public Use
  Company Number: None

PATIENT
  Age: 45 Year
  Sex: Female
  Weight: 56.25 kg

DRUGS (20)
  1. LYRICA [Suspect]
     Active Substance: PREGABALIN
     Indication: NEURALGIA
     Dosage: ?          QUANTITY:1 CAPSULE(S);?
     Route: 048
     Dates: start: 20180614
  2. BACLOFEN. [Concomitant]
     Active Substance: BACLOFEN
  3. CARDURA [Concomitant]
     Active Substance: DOXAZOSIN MESYLATE
  4. MULTI VITAMIN [Concomitant]
     Active Substance: VITAMINS
  5. AVINZA [Concomitant]
     Active Substance: MORPHINE SULFATE
  6. NITROGLYCERIN. [Concomitant]
     Active Substance: NITROGLYCERIN
  7. NABUNETONE [Concomitant]
  8. LOW DOSE PREDNISONE [Concomitant]
  9. PRISTIQ EXTENDED?RELEASE [Concomitant]
     Active Substance: DESVENLAFAXINE SUCCINATE
  10. HIGH DOSE VITAMIN D3 [Concomitant]
  11. MAGNESIUM [Concomitant]
     Active Substance: MAGNESIUM
  12. EXCEDERIN [Concomitant]
  13. LAMICTAL [Concomitant]
     Active Substance: LAMOTRIGINE
  14. EPLERENONE. [Concomitant]
     Active Substance: EPLERENONE
  15. VIMPAT [Concomitant]
     Active Substance: LACOSAMIDE
  16. RITUXAN?2 [Concomitant]
  17. HYDRALAZINE [Concomitant]
     Active Substance: HYDRALAZINE HYDROCHLORIDE
  18. ZOFRAN [Concomitant]
     Active Substance: ONDANSETRON HYDROCHLORIDE
  19. PHENERGAN [Concomitant]
     Active Substance: PROMETHAZINE HYDROCHLORIDE
  20. TYLENOL [Concomitant]
     Active Substance: ACETAMINOPHEN

REACTIONS (4)
  - Chest pain [None]
  - Hypertension [None]
  - Narcolepsy [None]
  - Arteriospasm coronary [None]

NARRATIVE: CASE EVENT DATE: 20180630
